FAERS Safety Report 7312341-9 (Version None)
Quarter: 2011Q1

REPORT INFORMATION
  Report Type: 
  Country: None (occurrence: None)
  Receive Date: 20110224
  Receipt Date: 20110214
  Transmission Date: 20110831
  Serious: Yes (Hospitalization, Other)
  Sender: FDA-Public Use
  Company Number: US-ELI_LILLY_AND_COMPANY-US200909006793

PATIENT
  Sex: Female

DRUGS (2)
  1. INSULIN [Concomitant]
     Indication: DIABETES MELLITUS
     Dosage: 30 IU, UNK
  2. FORTEO [Suspect]
     Dosage: UNK, UNKNOWN
     Dates: start: 20090901

REACTIONS (5)
  - ANXIETY [None]
  - FOOT FRACTURE [None]
  - FALL [None]
  - BLOOD GLUCOSE INCREASED [None]
  - RESPIRATORY TRACT IRRITATION [None]
